FAERS Safety Report 25920350 (Version 1)
Quarter: 2025Q4

REPORT INFORMATION
  Report Type: Report from Study
  Country: US (occurrence: US)
  Receive Date: 20251014
  Receipt Date: 20251014
  Transmission Date: 20260118
  Serious: Yes (Other)
  Sender: MALLINCKRODT
  Company Number: US-MALLINCKRODT-MNK202506223

PATIENT
  Sex: Male

DRUGS (1)
  1. CORTICOTROPIN [Suspect]
     Active Substance: CORTICOTROPIN
     Indication: Sarcoidosis
     Dosage: UNKNOWN

REACTIONS (5)
  - Atrial fibrillation [Unknown]
  - Irritability [Unknown]
  - Insomnia [Unknown]
  - Muscular weakness [Unknown]
  - Blood glucose increased [Unknown]
